FAERS Safety Report 16930339 (Version 1)
Quarter: 2019Q4

REPORT INFORMATION
  Report Type: Spontaneous
  Country: US (occurrence: US)
  Receive Date: 20191017
  Receipt Date: 20191017
  Transmission Date: 20200122
  Serious: No
  Sender: FDA-Public Use
  Company Number: US-PFIZER INC-2019444930

PATIENT
  Age: 79 Year
  Sex: Male
  Weight: 86.18 kg

DRUGS (2)
  1. ADVIL [Suspect]
     Active Substance: IBUPROFEN
     Indication: BACK PAIN
  2. ADVIL [Suspect]
     Active Substance: IBUPROFEN
     Indication: ARTHRALGIA
     Dosage: 200 MG, AS NEEDED
     Route: 048
     Dates: start: 2009

REACTIONS (4)
  - Oropharyngeal pain [Unknown]
  - Foreign body in respiratory tract [Recovered/Resolved]
  - Throat irritation [Not Recovered/Not Resolved]
  - Sensation of foreign body [Unknown]

NARRATIVE: CASE EVENT DATE: 201910
